FAERS Safety Report 5263427-4 (Version None)
Quarter: 2007Q1

REPORT INFORMATION
  Report Type: 
  Country: None (occurrence: None)
  Receive Date: 20070313
  Receipt Date: 20070227
  Transmission Date: 20070707
  Serious: Yes (Hospitalization)
  Sender: FDA-Public Use
  Company Number: 2007SE01198

PATIENT
  Age: 16564 Day
  Sex: Female

DRUGS (7)
  1. SEROQUEL [Suspect]
     Indication: BIPOLAR DISORDER
     Route: 048
     Dates: start: 20060214
  2. SEROQUEL [Suspect]
     Route: 048
     Dates: start: 20061001
  3. THYROXIN [Concomitant]
     Indication: HYPOTHYROIDISM
     Route: 048
     Dates: start: 19920101
  4. SPESICOR DOS [Concomitant]
     Route: 048
  5. OPAMOX [Concomitant]
     Dosage: 15 MG 1-3 TIMES DAILY
  6. LAMICTAL [Concomitant]
     Route: 048
  7. SEPRAM [Concomitant]
     Route: 048

REACTIONS (1)
  - HYPOTHYROIDISM [None]
